FAERS Safety Report 4968642-2 (Version None)
Quarter: 2006Q2

REPORT INFORMATION
  Report Type: 
  Country: None (occurrence: None)
  Receive Date: 20060405
  Receipt Date: 20060320
  Transmission Date: 20061013
  Serious: Yes (Hospitalization)
  Sender: FDA-Public Use
  Company Number: 2006025400

PATIENT
  Age: 32 Year
  Sex: Male

DRUGS (9)
  1. DOXORUBICIN HYDROCHLORIDE [Suspect]
     Indication: ACUTE LYMPHOCYTIC LEUKAEMIA
     Dosage: (25 MG/M*2, DAY1, DAY8 + DAY15), INTRAVENOUS
     Route: 042
     Dates: start: 20051027, end: 20051114
  2. ETOPOSIDE [Suspect]
     Indication: ACUTE LYMPHOCYTIC LEUKAEMIA
     Dosage: (150 MG/M*2, DAY 1), INTRAVENOUS
     Route: 042
     Dates: start: 20051129, end: 20051129
  3. CYTARABINE [Suspect]
     Indication: ACUTE LYMPHOCYTIC LEUKAEMIA
     Dosage: (30 MG/M*2, DAY 2), INTRAVENOUS
     Route: 042
     Dates: start: 20051129, end: 20051129
  4. ELSPAR [Suspect]
     Indication: ACUTE LYMPHOCYTIC LEUKAEMIA
     Dosage: 6000 IU/L (6 TIMES BETWEEN DAYS3 + DAY 15), INTRAVENOUS
     Route: 042
     Dates: start: 20051027, end: 20051114
  5. DEXAMETHASONE [Suspect]
     Indication: ACUTE LYMPHOCYTIC LEUKAEMIA
     Dosage: (10 MG/M*2, DAY1-15),
  6. ELDISINE [Suspect]
     Indication: ACUTE LYMPHOCYTIC LEUKAEMIA
     Dosage: (3 MG/M*2, DAY1, DAY8 + DAY15), INTRAVENOUS
     Route: 042
     Dates: start: 20051027, end: 20051114
  7. LANVIS (TIOGUANINE) [Suspect]
     Indication: ACUTE LYMPHOCYTIC LEUKAEMIA
     Dosage: ORAL
     Route: 048
     Dates: start: 20051129, end: 20051206
  8. BACTRIM [Concomitant]
  9. THIOGUANINE [Concomitant]

REACTIONS (17)
  - ASCITES [None]
  - BLOOD TRIGLYCERIDES INCREASED [None]
  - COAGULATION FACTOR V LEVEL DECREASED [None]
  - COAGULATION FACTOR VII LEVEL DECREASED [None]
  - COAGULOPATHY [None]
  - DIALYSIS [None]
  - DISSEMINATED INTRAVASCULAR COAGULATION [None]
  - HEPATIC FAILURE [None]
  - HISTIOCYTOSIS HAEMATOPHAGIC [None]
  - HYPERTRIGLYCERIDAEMIA [None]
  - PANCYTOPENIA [None]
  - PLEURAL EFFUSION [None]
  - PROTHROMBIN LEVEL DECREASED [None]
  - PYREXIA [None]
  - RENAL FAILURE ACUTE [None]
  - SERUM FERRITIN INCREASED [None]
  - VENOOCCLUSIVE LIVER DISEASE [None]
